FAERS Safety Report 15352321 (Version 1)
Quarter: 2018Q3

REPORT INFORMATION
  Report Type: Report from Study
  Country: US (occurrence: US)
  Receive Date: 20180905
  Receipt Date: 20180905
  Transmission Date: 20181010
  Serious: Yes (Other)
  Sender: FDA-Public Use
  Company Number: US-AMGEN-USASL2018119301

PATIENT
  Age: 80 Year
  Sex: Female

DRUGS (1)
  1. PROLIA [Suspect]
     Active Substance: DENOSUMAB
     Indication: PRODUCT USED FOR UNKNOWN INDICATION
     Dosage: UNK
     Route: 065
     Dates: start: 2016

REACTIONS (6)
  - Fall [Unknown]
  - Feeling abnormal [Unknown]
  - Upper limb fracture [Unknown]
  - Trigeminal neuralgia [Not Recovered/Not Resolved]
  - Joint dislocation [Unknown]
  - Ligament rupture [Unknown]

NARRATIVE: CASE EVENT DATE: 2016
